FAERS Safety Report 9845722 (Version 2)
Quarter: 2014Q1

REPORT INFORMATION
  Report Type: Spontaneous
  Country: US (occurrence: US)
  Receive Date: 20140127
  Receipt Date: 20140127
  Transmission Date: 20141002
  Serious: Yes (Hospitalization)
  Sender: FDA-Public Use
  Company Number: US-BAXTER-2014BAX002210

PATIENT
  Sex: Female

DRUGS (6)
  1. DIANEAL LOW CALCIUM [Suspect]
     Indication: RENAL FAILURE CHRONIC
     Route: 033
     Dates: start: 20090923
  2. DIANEAL LOW CALCIUM [Suspect]
     Route: 033
     Dates: start: 20090923
  3. DIANEAL LOW CALCIUM [Suspect]
     Indication: RENAL FAILURE CHRONIC
     Route: 033
     Dates: start: 20090923
  4. DIANEAL LOW CALCIUM [Suspect]
     Route: 033
     Dates: start: 20090923
  5. DIANEAL LOW CALCIUM [Suspect]
     Indication: RENAL FAILURE CHRONIC
     Route: 033
     Dates: start: 20090923
  6. DIANEAL LOW CALCIUM [Suspect]
     Route: 033
     Dates: start: 20090923

REACTIONS (2)
  - Pericarditis [Recovering/Resolving]
  - Dyspnoea [Recovering/Resolving]
